FAERS Safety Report 22962568 (Version 18)
Quarter: 2025Q1

REPORT INFORMATION
  Report Type: Report from Study
  Country: JP (occurrence: JP)
  Receive Date: 20230920
  Receipt Date: 20250118
  Transmission Date: 20250409
  Serious: Yes (Hospitalization, Other)
  Sender: ABBVIE
  Company Number: JP-GSKJP-JP2023JPN124622

PATIENT
  Age: 65 Year
  Sex: Male
  Weight: 83 kg

DRUGS (28)
  1. BOTULINUM TOXIN TYPE A [Suspect]
     Active Substance: BOTULINUM TOXIN TYPE A
     Indication: Muscle spasms
     Route: 065
     Dates: start: 20230809, end: 20230809
  2. BOTULINUM TOXIN TYPE A [Suspect]
     Active Substance: BOTULINUM TOXIN TYPE A
     Indication: Muscle spasms
     Route: 065
     Dates: start: 20230515, end: 20230515
  3. CILOSTAZOL [Concomitant]
     Active Substance: CILOSTAZOL
     Indication: Product used for unknown indication
  4. BETAMETHASONE BUTYRATE PROPIONATE [Concomitant]
     Active Substance: BETAMETHASONE BUTYRATE PROPIONATE
     Indication: Product used for unknown indication
  5. ENOXOLONE [Concomitant]
     Active Substance: ENOXOLONE
     Indication: Product used for unknown indication
  6. LANSOPRAZOLE [Concomitant]
     Active Substance: LANSOPRAZOLE
     Indication: Product used for unknown indication
  7. LINAGLIPTIN [Concomitant]
     Active Substance: LINAGLIPTIN
     Indication: Product used for unknown indication
  8. CILNIDIPINE [Concomitant]
     Active Substance: CILNIDIPINE
     Indication: Product used for unknown indication
  9. METHYL SALICYLATE [Concomitant]
     Active Substance: METHYL SALICYLATE
     Indication: Muscle spasms
  10. KETOPROFEN [Concomitant]
     Active Substance: KETOPROFEN
     Indication: Muscle spasms
  11. TOLVAPTAN [Concomitant]
     Active Substance: TOLVAPTAN
     Indication: Product used for unknown indication
  12. ASPIRIN [Concomitant]
     Active Substance: ASPIRIN
     Indication: Prophylaxis
  13. DANTROLENE SODIUM [Concomitant]
     Active Substance: DANTROLENE SODIUM
     Indication: Muscle spasms
     Dosage: 25 MG, 1D
  14. DIFLUCORTOLONE VALERATE [Concomitant]
     Active Substance: DIFLUCORTOLONE VALERATE
     Indication: Product used for unknown indication
  15. DAPAGLIFLOZIN [Concomitant]
     Active Substance: DAPAGLIFLOZIN
     Indication: Product used for unknown indication
  16. ALPROSTADIL ALFADEX [Concomitant]
     Active Substance: ALPROSTADIL ALFADEX
     Indication: Product used for unknown indication
     Dates: start: 20231013, end: 20231027
  17. BISOPROLOL [Concomitant]
     Active Substance: BISOPROLOL
     Indication: Product used for unknown indication
  18. MEPIVACAINE HYDROCHLORIDE [Concomitant]
     Active Substance: MEPIVACAINE HYDROCHLORIDE
     Indication: Muscle spasms
     Dates: end: 20230515
  19. HYDROCORTISONE [Concomitant]
     Active Substance: HYDROCORTISONE
     Indication: Product used for unknown indication
     Dates: start: 20231006
  20. GLYCOSAMINOGLYCANS [Concomitant]
     Active Substance: GLYCOSAMINOGLYCANS
     Indication: Eczema
  21. DIPHENHYDRAMINE [Concomitant]
     Active Substance: DIPHENHYDRAMINE
     Indication: Product used for unknown indication
     Dates: start: 20231207
  22. BETAMETHASONE VALERATE\GENTAMICIN SULFATE [Concomitant]
     Active Substance: BETAMETHASONE VALERATE\GENTAMICIN SULFATE
     Indication: Product used for unknown indication
     Dates: start: 20231013
  23. FUROSEMIDE [Concomitant]
     Active Substance: FUROSEMIDE
     Indication: Product used for unknown indication
     Dates: start: 20240126
  24. FEBUXOSTAT [Concomitant]
     Active Substance: FEBUXOSTAT
     Indication: Product used for unknown indication
     Dates: start: 20231020
  25. TRAMADOL HYDROCHLORIDE [Concomitant]
     Active Substance: TRAMADOL HYDROCHLORIDE
     Indication: Muscle spasms
     Dates: start: 20230904, end: 20230908
  26. TRAMADOL HYDROCHLORIDE [Concomitant]
     Active Substance: TRAMADOL HYDROCHLORIDE
     Indication: Muscle spasms
     Dates: start: 20230904, end: 20230908
  27. ACETAMINOPHEN [Concomitant]
     Active Substance: ACETAMINOPHEN
     Indication: Pain
     Dates: start: 20230904, end: 20230908
  28. FEXOFENADINE HYDROCHLORIDE [Concomitant]
     Active Substance: FEXOFENADINE HYDROCHLORIDE
     Indication: Product used for unknown indication

REACTIONS (5)
  - Cellulitis [Recovering/Resolving]
  - Product preparation error [Unknown]
  - Off label use [Unknown]
  - Dermatitis [Recovering/Resolving]
  - Renal failure [Recovering/Resolving]

NARRATIVE: CASE EVENT DATE: 20230515
